FAERS Safety Report 12791299 (Version 1)
Quarter: 2016Q3

REPORT INFORMATION
  Report Type: Report from Study
  Country: US (occurrence: US)
  Receive Date: 20160929
  Receipt Date: 20160929
  Transmission Date: 20161109
  Serious: Yes (Other)
  Sender: FDA-Public Use
  Company Number: US-ROCHE-1836173

PATIENT
  Age: 61 Year
  Sex: Female
  Weight: 41.7 kg

DRUGS (2)
  1. BEVACIZUMAB [Suspect]
     Active Substance: BEVACIZUMAB
     Indication: OVARIAN EPITHELIAL CANCER
     Route: 042
     Dates: start: 20120919, end: 20140529
  2. FOSBRETABULIN TROMETHAMINE [Suspect]
     Active Substance: FOSBRETABULIN TROMETHAMINE
     Indication: OVARIAN EPITHELIAL CANCER
     Route: 042
     Dates: start: 20120919, end: 20140529

REACTIONS (10)
  - Hypertension [Unknown]
  - Diarrhoea [None]
  - Urinary tract infection [None]
  - Epistaxis [None]
  - Dry mouth [None]
  - Disease progression [None]
  - Rectal haemorrhage [Unknown]
  - Influenza like illness [Unknown]
  - Constipation [None]
  - Hyperkalaemia [None]
